FAERS Safety Report 23859958 (Version 1)
Quarter: 2024Q2

REPORT INFORMATION
  Report Type: Spontaneous
  Country: US (occurrence: US)
  Receive Date: 20240515
  Receipt Date: 20240515
  Transmission Date: 20240716
  Serious: No
  Sender: FDA-Public Use
  Company Number: US-OPELLA-2024OHG016061

PATIENT

DRUGS (1)
  1. NASACORT [Suspect]
     Active Substance: TRIAMCINOLONE ACETONIDE
     Indication: Product used for unknown indication
     Dosage: UNK

REACTIONS (1)
  - Product dispensing error [Unknown]
